FAERS Safety Report 7081992-1 (Version None)
Quarter: 2010Q4

REPORT INFORMATION
  Report Type: 
  Country: None (occurrence: None)
  Receive Date: 20101103
  Receipt Date: 20101027
  Transmission Date: 20110411
  Serious: Yes (Other)
  Sender: FDA-Public Use
  Company Number: US-PFIZER INC-2010137086

PATIENT
  Sex: Female

DRUGS (3)
  1. ESTRING [Suspect]
     Dosage: 2 MG, UNK
     Dates: end: 20100101
  2. PHENOBARBITAL [Concomitant]
     Dosage: UNK
  3. CRESTOR [Concomitant]
     Dosage: UNK

REACTIONS (3)
  - ATROPHIC VULVOVAGINITIS [None]
  - POOR QUALITY DRUG ADMINISTERED [None]
  - VAGINAL HAEMORRHAGE [None]
